FAERS Safety Report 14272358 (Version 1)
Quarter: 2017Q4

REPORT INFORMATION
  Report Type: Report from Study
  Country: IT (occurrence: IT)
  Receive Date: 20171211
  Receipt Date: 20171211
  Transmission Date: 20180321
  Serious: Yes (Other)
  Sender: FDA-Public Use
  Company Number: IT-OTSUKA-DJ20129123

PATIENT
  Age: 65 Year
  Sex: Female

DRUGS (1)
  1. ARIPIPRAZOLE. [Suspect]
     Active Substance: ARIPIPRAZOLE
     Indication: PRODUCT USED FOR UNKNOWN INDICATION
     Dosage: 20 MG, BID
     Route: 048

REACTIONS (7)
  - Decreased interest [Unknown]
  - Off label use [Unknown]
  - Drug ineffective [Unknown]
  - Flat affect [Unknown]
  - Delusion [Unknown]
  - Disturbance in attention [Unknown]
  - Social avoidant behaviour [Unknown]
